FAERS Safety Report 4494381-0 (Version None)
Quarter: 2004Q4

REPORT INFORMATION
  Report Type: 
  Country: None (occurrence: None)
  Receive Date: 20041102
  Receipt Date: 20041027
  Transmission Date: 20050328
  Serious: Yes (Life-Threatening, Other)
  Sender: FDA-Public Use
  Company Number: JP_041004733

PATIENT
  Age: 81 Year
  Sex: Female

DRUGS (15)
  1. EVISTA [Suspect]
     Indication: OSTEOPOROSIS
     Dosage: 60 MG DAY
     Dates: start: 20040713, end: 20040922
  2. ALFAROL (ALFACALCIDOL) [Concomitant]
  3. LANSOPRAZOLE [Concomitant]
  4. RHEUMATREX [Concomitant]
  5. PREDNISOLONE [Concomitant]
  6. METHYCOBAL (MECOBALAMIN) [Concomitant]
  7. HALCION [Concomitant]
  8. SENNOSIDE A [Concomitant]
  9. AMLODIPINE BESYLATE [Concomitant]
  10. ACECOL (TEMOCAPRIL HYDROCHLORIDE) [Concomitant]
  11. SPIRONOLACTONE [Concomitant]
  12. LASIX [Concomitant]
  13. ANTUP (ISOSORBIDE DINITRATE) [Concomitant]
  14. BUFFERIN [Concomitant]
  15. ASPARA K(ASPARTATE POTASSIUM) [Concomitant]

REACTIONS (4)
  - ASTHMA [None]
  - BODY TEMPERATURE INCREASED [None]
  - PANCYTOPENIA [None]
  - PNEUMONIA [None]
